FAERS Safety Report 6370361-5 (Version None)
Quarter: 2009Q3

REPORT INFORMATION
  Report Type: 
  Country: None (occurrence: None)
  Receive Date: 20090923
  Receipt Date: 20090801
  Transmission Date: 20100115
  Serious: No
  Sender: FDA-Public Use
  Company Number: US-BAYER-200929022NA

PATIENT
  Age: 48 Year
  Sex: Female

DRUGS (1)
  1. YAZ [Suspect]
     Indication: PREMENSTRUAL SYNDROME
     Dosage: UNIT DOSE: 1 DF
     Dates: start: 20090701

REACTIONS (5)
  - FATIGUE [None]
  - HEADACHE [None]
  - MENSTRUATION DELAYED [None]
  - NAUSEA [None]
  - WEIGHT INCREASED [None]
